FAERS Safety Report 6923919-6 (Version None)
Quarter: 2010Q3

REPORT INFORMATION
  Report Type: 
  Country: None (occurrence: None)
  Receive Date: 20100813
  Receipt Date: 20100803
  Transmission Date: 20110219
  Serious: Yes (Disabling, Other)
  Sender: FDA-Public Use
  Company Number: US-ELI_LILLY_AND_COMPANY-US201008000925

PATIENT
  Sex: Male

DRUGS (4)
  1. HUMULIN N [Suspect]
  2. NOVOLOG [Concomitant]
  3. PLAVIX [Concomitant]
  4. DIOVAN [Concomitant]

REACTIONS (2)
  - CEREBROVASCULAR ACCIDENT [None]
  - MYOCARDIAL INFARCTION [None]
